FAERS Safety Report 4299089-2 (Version None)
Quarter: 2004Q1

REPORT INFORMATION
  Report Type: 
  Country: None (occurrence: None)
  Receive Date: 20040217
  Receipt Date: 20040209
  Transmission Date: 20041129
  Serious: Yes (Hospitalization)
  Sender: FDA-Public Use
  Company Number: 7359

PATIENT
  Age: 74 Year
  Sex: Male

DRUGS (13)
  1. METHOTREXATE [Suspect]
     Indication: RHEUMATOID ARTHRITIS
     Dates: end: 20021108
  2. LEFLUNOMIDE [Suspect]
     Indication: RHEUMATOID ARTHRITIS
     Dosage: 20 MG
     Dates: end: 20021108
  3. PREDNISOLONE [Concomitant]
  4. CELECOXIB [Concomitant]
  5. MORPHINE SULFATE [Concomitant]
  6. LISINOPRIL [Concomitant]
  7. FOLIC ACID [Concomitant]
  8. AMITRIPTYLINE HCL [Concomitant]
  9. METOCLOPRAMIDE [Concomitant]
  10. TEMAZEPAM [Concomitant]
  11. IPRATROPIUM BROMIDE [Concomitant]
  12. SALBUTAMOL [Concomitant]
  13. BECLOMETHASONE DIPROPIONATE [Concomitant]

REACTIONS (3)
  - AGRANULOCYTOSIS [None]
  - PANCYTOPENIA [None]
  - PHARYNGITIS [None]
